FAERS Safety Report 4802562-9 (Version None)
Quarter: 2005Q4

REPORT INFORMATION
  Report Type: 
  Country: None (occurrence: None)
  Receive Date: 20051011
  Receipt Date: 20050928
  Transmission Date: 20060501
  Serious: Yes (Disabling, Other)
  Sender: FDA-Public Use
  Company Number: 2005138158

PATIENT

DRUGS (4)
  1. FELDENE [Suspect]
     Indication: ILL-DEFINED DISORDER
  2. CELEBREX [Suspect]
     Indication: ILL-DEFINED DISORDER
  3. IBUPROFEN [Suspect]
     Indication: ILL-DEFINED DISORDER
  4. GENTAMICIN [Suspect]
     Indication: ILL-DEFINED DISORDER

REACTIONS (4)
  - DEAFNESS UNILATERAL [None]
  - DISEASE RECURRENCE [None]
  - EAR DISORDER [None]
  - MENIERE'S DISEASE [None]
